FAERS Safety Report 19631825 (Version 1)
Quarter: 2021Q3

REPORT INFORMATION
  Report Type: Spontaneous
  Country: US (occurrence: US)
  Receive Date: 20210728
  Receipt Date: 20210728
  Transmission Date: 20211014
  Serious: No
  Sender: FDA-Public Use
  Company Number: US-ROCHE-2588658

PATIENT
  Age: 72 Year
  Sex: Female

DRUGS (1)
  1. XELODA [Suspect]
     Active Substance: CAPECITABINE
     Indication: PRODUCT USED FOR UNKNOWN INDICATION
     Route: 048
     Dates: start: 20200101

REACTIONS (5)
  - Haematochezia [Unknown]
  - Constipation [Unknown]
  - Fatigue [Unknown]
  - Nausea [Unknown]
  - Proctalgia [Unknown]

NARRATIVE: CASE EVENT DATE: 20200101
